FAERS Safety Report 11441089 (Version 1)
Quarter: 2015Q3

REPORT INFORMATION
  Report Type: Spontaneous
  Country: US (occurrence: US)
  Receive Date: 20150821
  Receipt Date: 20150821
  Transmission Date: 20151125
  Serious: No
  Sender: FDA-Public Use
  Company Number: US-ELI_LILLY_AND_COMPANY-US200802004247

PATIENT
  Age: 41 Year
  Sex: Female

DRUGS (4)
  1. CYMBALTA [Suspect]
     Active Substance: DULOXETINE HYDROCHLORIDE
     Dosage: 1 D/F, UNK
     Dates: start: 20071127
  2. VALIUM [Concomitant]
     Active Substance: DIAZEPAM
     Dosage: 1 D/F, UNK
  3. SYNTHROID [Concomitant]
     Active Substance: LEVOTHYROXINE SODIUM
     Dosage: 1 D/F, UNK
  4. TALWIN [Concomitant]
     Active Substance: PENTAZOCINE LACTATE
     Dosage: 1 D/F, UNK

REACTIONS (2)
  - Rash [Unknown]
  - Acne [Unknown]

NARRATIVE: CASE EVENT DATE: 20080211
